FAERS Safety Report 14552327 (Version 1)
Quarter: 2018Q1

REPORT INFORMATION
  Report Type: Spontaneous
  Country: US (occurrence: US)
  Receive Date: 20180220
  Receipt Date: 20180220
  Transmission Date: 20180509
  Serious: Yes (Other)
  Sender: FDA-Public Use
  Company Number: US-GLENMARK PHARMACEUTICALS-2018GMK032104

PATIENT

DRUGS (7)
  1. REQUIP [Suspect]
     Active Substance: ROPINIROLE HYDROCHLORIDE
     Indication: RESTLESS LEGS SYNDROME
     Dosage: 1 DF, OD, 30 MIN- 1 HOUR BEFORE BEDTIME
     Route: 048
     Dates: start: 2010
  2. ROPINIROLE HYDROCHLORIDE. [Suspect]
     Active Substance: ROPINIROLE HYDROCHLORIDE
     Indication: RESTLESS LEGS SYNDROME
     Dosage: 1 DF, BID, EVERY EVENING AT BEDTIME
     Route: 048
     Dates: start: 2012
  3. ROPINIROLE HYDROCHLORIDE. [Suspect]
     Active Substance: ROPINIROLE HYDROCHLORIDE
     Indication: RESTLESS LEGS SYNDROME
     Dosage: 1 DF, OD, 30 MINS BEFORE BEDTIME
     Route: 048
     Dates: start: 2011
  4. ROPINIROLE HYDROCHLORIDE. [Suspect]
     Active Substance: ROPINIROLE HYDROCHLORIDE
     Dosage: 1 DF, OD, 30 MINS BEFORE BEDTIME
     Route: 048
     Dates: start: 2011
  5. ROPINIROLE HYDROCHLORIDE. [Suspect]
     Active Substance: ROPINIROLE HYDROCHLORIDE
     Dosage: 2 MG, QD, EVERY NIGHT
     Route: 048
     Dates: start: 2013, end: 2017
  6. ROPINIROLE HYDROCHLORIDE. [Suspect]
     Active Substance: ROPINIROLE HYDROCHLORIDE
     Indication: RESTLESS LEGS SYNDROME
     Dosage: 1 DF, OD, 30 MINS PRIOR BEDTIME
     Route: 048
     Dates: start: 2011
  7. REQUIP [Suspect]
     Active Substance: ROPINIROLE HYDROCHLORIDE
     Indication: RESTLESS LEGS SYNDROME
     Dosage: UNK, OD, ONE AND A HALF TABLET AT BEDTIME
     Route: 048
     Dates: start: 2011, end: 201702

REACTIONS (8)
  - Exercise lack of [Unknown]
  - Inadequate diet [Unknown]
  - Road traffic accident [Unknown]
  - Economic problem [Unknown]
  - Loss of employment [Unknown]
  - Gambling [Recovering/Resolving]
  - Somnolence [Unknown]
  - Obsessive-compulsive disorder [Unknown]

NARRATIVE: CASE EVENT DATE: 2012
